FAERS Safety Report 5546794-3 (Version None)
Quarter: 2007Q4

REPORT INFORMATION
  Report Type: 
  Country: None (occurrence: None)
  Receive Date: 20071206
  Receipt Date: 20071106
  Transmission Date: 20080405
  Serious: Yes (Life-Threatening)
  Sender: FDA-Public Use
  Company Number: 2007US002698

PATIENT
  Age: 43 Year
  Sex: Female
  Weight: 113 kg

DRUGS (46)
  1. AMBISOME [Suspect]
     Indication: ANTIFUNGAL PROPHYLAXIS
     Dosage: 3 MG/KG, Q3D
     Dates: start: 20071007, end: 20071019
  2. RASBURICASE (RASBURICASE) [Concomitant]
  3. HYDROXYUREA [Concomitant]
  4. OMEPRAZOLE [Concomitant]
  5. ACYCLOVIR [Concomitant]
  6. POTASSIUM CHLORIDE [Concomitant]
  7. SALINEX (SODIUM CHLORIDE) [Concomitant]
  8. BICARBONAT (SODIUM BICARBONATE) [Concomitant]
  9. ALLOPURINOL [Concomitant]
  10. CEFTAZIDIME [Concomitant]
  11. AMIKACIN [Concomitant]
  12. PREDNISONE [Concomitant]
  13. ETACRYNIC ACID (ETACRYNIC ACID) [Concomitant]
  14. PHYTONADIONE [Concomitant]
  15. MEROPENEM (MEROPENEM) [Concomitant]
  16. MAGNESIUM [Concomitant]
  17. MORPHINE SULFATE [Concomitant]
  18. FLUDARABINE PHOSPHATE [Concomitant]
  19. TREOSULFAN (TREOSULFAN) [Concomitant]
  20. COTRIM [Concomitant]
  21. GANCICLOVIR [Concomitant]
  22. ACETAZOLAMIDE [Concomitant]
  23. ONDANSETRON HCL [Concomitant]
  24. DEXAMETHASONE TAB [Concomitant]
  25. ALBUMIN (HUMAN) [Concomitant]
  26. FUROSEMIDE [Concomitant]
  27. DIANEAL PD1 GLUCOSA (GLUCOSE, SODIUM LACTATE, MAGNESIUM CHLORIDE HEXAH [Concomitant]
  28. NACL (SODIUM CHLORIDE) [Concomitant]
  29. ATG (ANTITHYMOCYTE IMMUNOGLOBULIN) [Concomitant]
  30. CHLORPHENIRAMINE TAB [Concomitant]
  31. CALCIUM (CALCIUM) [Concomitant]
  32. RAPAMYCIN (SIROLIMUS) [Concomitant]
  33. RITUXIMAB (RITUXIMAB) [Concomitant]
  34. ACETAMINOPHEN [Concomitant]
  35. MYCOPHENOLATE MOFETIL [Concomitant]
  36. PIPERACILLIN [Concomitant]
  37. CLINDAMYCIN HCL [Concomitant]
  38. DIAZEPAM [Concomitant]
  39. HYDROCORTISONE [Concomitant]
  40. VANCOMYCIN [Concomitant]
  41. TRAMADOLE (TRAMADOL HYDROCHLORIDE) [Concomitant]
  42. LOPERAMIDE [Concomitant]
  43. AZITHROMYCIN [Concomitant]
  44. PENTAMIDINE (PENTAMIDINE) [Concomitant]
  45. FOSCARNET [Concomitant]
  46. CELECOXIB [Concomitant]

REACTIONS (14)
  - ANURIA [None]
  - ATRIAL FIBRILLATION [None]
  - FLUID OVERLOAD [None]
  - HAEMODIALYSIS [None]
  - HYPOTENSION [None]
  - LEUKAEMIA [None]
  - NEPHROPATHY TOXIC [None]
  - NO THERAPEUTIC RESPONSE [None]
  - PAIN [None]
  - PNEUMONIA [None]
  - PSEUDOMONAS INFECTION [None]
  - RENAL FAILURE [None]
  - SEPTIC SHOCK [None]
  - SERRATIA INFECTION [None]
